FAERS Safety Report 8523063-0 (Version None)
Quarter: 2012Q3

REPORT INFORMATION
  Report Type: 
  Country: None (occurrence: None)
  Receive Date: 20120713
  Receipt Date: 20120713
  Transmission Date: 20120928
  Serious: Yes (Hospitalization)
  Sender: FDA-Public Use
  Company Number: None

PATIENT
  Age: 54 Year
  Sex: Male
  Weight: 89.5 kg

DRUGS (2)
  1. ACETAMINOPHEN/HYDROCODONE BITARTRATE [Suspect]
     Indication: PAIN
     Dosage: MG PO
     Route: 048
     Dates: start: 20120317, end: 20120318
  2. DICYCLOMINE [Suspect]
     Indication: IRRITABLE BOWEL SYNDROME
     Dosage: MG PO
     Route: 048
     Dates: start: 20111006, end: 20120317

REACTIONS (1)
  - CONSTIPATION [None]
